FAERS Safety Report 5071614-3 (Version None)
Quarter: 2006Q3

REPORT INFORMATION
  Report Type: 
  Country: None (occurrence: None)
  Receive Date: 20060804
  Receipt Date: 20060801
  Transmission Date: 20061208
  Serious: Yes (Life-Threatening, Hospitalization, Other)
  Sender: FDA-Public Use
  Company Number: US-MERCK-0608USA00370

PATIENT
  Sex: Male
  Weight: 63 kg

DRUGS (1)
  1. ZOCOR [Suspect]
     Route: 048
     Dates: start: 20060426

REACTIONS (4)
  - BLOOD CREATINE PHOSPHOKINASE INCREASED [None]
  - BLOOD URINE [None]
  - FATIGUE [None]
  - MUSCULOSKELETAL PAIN [None]
